FAERS Safety Report 25572396 (Version 2)
Quarter: 2025Q3

REPORT INFORMATION
  Report Type: Spontaneous
  Country: CA (occurrence: CA)
  Receive Date: 20250717
  Receipt Date: 20250819
  Transmission Date: 20251021
  Serious: Yes (Death, Life-Threatening, Hospitalization, Disabling, Congenital Anomaly, Other)
  Sender: SANOFI AVENTIS
  Company Number: CA-SA-2025SA189713

PATIENT
  Sex: Female
  Weight: 96 kg

DRUGS (21)
  1. HYDROXYCHLOROQUINE SULFATE [Suspect]
     Active Substance: HYDROXYCHLOROQUINE SULFATE
     Indication: Rheumatoid arthritis
     Route: 048
  2. HYDROXYCHLOROQUINE SULFATE [Suspect]
     Active Substance: HYDROXYCHLOROQUINE SULFATE
     Indication: Rheumatoid arthritis
     Dosage: 40 MG, QD
     Route: 048
  3. KEVZARA [Suspect]
     Active Substance: SARILUMAB
     Indication: Rheumatoid arthritis
  4. DICLOFENAC DIETHYLAMINE [Suspect]
     Active Substance: DICLOFENAC DIETHYLAMINE
     Indication: Product used for unknown indication
  5. DICLOFENAC POTASSIUM [Suspect]
     Active Substance: DICLOFENAC POTASSIUM
     Indication: Product used for unknown indication
  6. LAMOTRIGINE [Suspect]
     Active Substance: LAMOTRIGINE
     Indication: Product used for unknown indication
     Dosage: 100 MG, QD
  7. LAMOTRIGINE [Suspect]
     Active Substance: LAMOTRIGINE
     Dosage: 50 MG, QD
  8. LAMOTRIGINE [Suspect]
     Active Substance: LAMOTRIGINE
     Dosage: 25 MG, QD
  9. OMEPRAZOLE [Suspect]
     Active Substance: OMEPRAZOLE
  10. PREDNISONE [Suspect]
     Active Substance: PREDNISONE
     Indication: Rheumatoid arthritis
     Route: 048
  11. PREDNISONE [Suspect]
     Active Substance: PREDNISONE
  12. PREDNISONE [Suspect]
     Active Substance: PREDNISONE
     Route: 048
  13. RAMIPRIL [Suspect]
     Active Substance: RAMIPRIL
     Indication: Product used for unknown indication
     Route: 040
  14. RAMIPRIL [Suspect]
     Active Substance: RAMIPRIL
     Route: 016
  15. RAMIPRIL [Suspect]
     Active Substance: RAMIPRIL
     Route: 016
  16. RAMIPRIL [Suspect]
     Active Substance: RAMIPRIL
     Route: 040
  17. RANITIDINE HYDROCHLORIDE [Suspect]
     Active Substance: RANITIDINE HYDROCHLORIDE
     Indication: Rheumatoid arthritis
  18. TRAMADOL HYDROCHLORIDE [Suspect]
     Active Substance: TRAMADOL HYDROCHLORIDE
  19. DICLOFENAC SODIUM [Suspect]
     Active Substance: DICLOFENAC SODIUM
  20. NAPROXEN SODIUM [Suspect]
     Active Substance: NAPROXEN SODIUM
     Indication: Rheumatoid arthritis
  21. GOLD SODIUM THIOMALATE [Suspect]
     Active Substance: GOLD SODIUM THIOMALATE

REACTIONS (20)
  - Breast cancer stage II [Fatal]
  - Breast cancer stage III [Fatal]
  - Crohn^s disease [Fatal]
  - Deep vein thrombosis postoperative [Fatal]
  - Delirium [Fatal]
  - Dislocation of vertebra [Fatal]
  - Duodenal ulcer perforation [Fatal]
  - Product quality issue [Fatal]
  - Medication error [Fatal]
  - Prescribed underdose [Fatal]
  - Product use issue [Fatal]
  - Prescribed overdose [Fatal]
  - Product use in unapproved indication [Fatal]
  - Therapeutic product effect decreased [Fatal]
  - Treatment failure [Fatal]
  - Therapeutic product effect incomplete [Fatal]
  - Drug ineffective [Fatal]
  - Contraindicated product administered [Fatal]
  - Exposure during pregnancy [Fatal]
  - Therapy non-responder [Fatal]
